FAERS Safety Report 6055214-4 (Version None)
Quarter: 2009Q1

REPORT INFORMATION
  Report Type: 
  Country: None (occurrence: None)
  Receive Date: 20090128
  Receipt Date: 20090121
  Transmission Date: 20090719
  Serious: Yes (Hospitalization)
  Sender: FDA-Public Use
  Company Number: JP-JNJFOC-20081102097

PATIENT
  Age: 78 Year
  Sex: Female
  Weight: 44 kg

DRUGS (7)
  1. ITRIZOLE [Suspect]
     Indication: BRONCHOPULMONARY ASPERGILLOSIS
     Route: 048
  2. SULFAMETHOXAZOLE AND TRIMETHOPRIM [Concomitant]
  3. COTRIM [Concomitant]
     Route: 048
  4. TAKEPRON [Concomitant]
     Route: 048
  5. SLOW-K [Concomitant]
     Indication: HYPOKALAEMIA
     Route: 048
  6. WARFARIN SODIUM [Concomitant]
     Indication: ATRIAL FIBRILLATION
     Route: 048
  7. PREDONINE [Concomitant]
     Indication: INTERSTITIAL LUNG DISEASE
     Route: 048

REACTIONS (4)
  - CELLULITIS [None]
  - INTERSTITIAL LUNG DISEASE [None]
  - PANCYTOPENIA [None]
  - WHITE BLOOD CELL COUNT DECREASED [None]
